FAERS Safety Report 6692875-0 (Version None)
Quarter: 2010Q2

REPORT INFORMATION
  Report Type: 
  Country: None (occurrence: None)
  Receive Date: 20100422
  Receipt Date: 20100416
  Transmission Date: 20101027
  Serious: Yes (Hospitalization, Other)
  Sender: FDA-Public Use
  Company Number: US-ABBOTT-10P-163-0639394-00

PATIENT
  Sex: Female

DRUGS (2)
  1. HUMIRA [Suspect]
     Indication: DRUG USE FOR UNKNOWN INDICATION
     Dates: start: 20100410
  2. HUMIRA [Suspect]
     Route: 058
     Dates: end: 20090801

REACTIONS (3)
  - INFLUENZA [None]
  - PANCREATIC DISORDER [None]
  - URINARY TRACT INFECTION [None]
